FAERS Safety Report 19679158 (Version 1)
Quarter: 2021Q3

REPORT INFORMATION
  Report Type: Spontaneous
  Country: US (occurrence: US)
  Receive Date: 20210810
  Receipt Date: 20210810
  Transmission Date: 20211014
  Serious: No
  Sender: FDA-Public Use
  Company Number: US-DRREDDYS-SPO/USA/21/0138687

PATIENT
  Age: 34 Year
  Sex: Female

DRUGS (2)
  1. ACCUTANE [Suspect]
     Active Substance: ISOTRETINOIN
     Indication: PRODUCT USED FOR UNKNOWN INDICATION
     Dosage: RMA ISSUE DATE:23 MARCH 2021 6:27:45 PM,20 APRIL 2021 6:01:06 PM,21 MAY 2021 1:44:25 PM,29 JUNE 2021
  2. ZENATANE [Suspect]
     Active Substance: ISOTRETINOIN
     Indication: PRODUCT USED FOR UNKNOWN INDICATION
     Dosage: RMA ISSUE DATE:28 APRIL 2015 6:52:10 PM

REACTIONS (2)
  - Dry eye [Unknown]
  - Eye irritation [Unknown]
